FAERS Safety Report 11411140 (Version 1)
Quarter: 2015Q3

REPORT INFORMATION
  Report Type: Spontaneous
  Country: IN (occurrence: IN)
  Receive Date: 20150824
  Receipt Date: 20150824
  Transmission Date: 20151125
  Serious: Yes (Life-Threatening, Hospitalization)
  Sender: FDA-Public Use
  Company Number: IN-FRESENIUS KABI-FK201503996

PATIENT
  Age: 45 Year
  Sex: Female

DRUGS (3)
  1. HALOPERIDOL INJECTION (MANUFACTURER UNKNOWN) [Suspect]
     Active Substance: HALOPERIDOL LACTATE
     Indication: ABNORMAL BEHAVIOUR
     Route: 065
  2. TRIHEXYPHENIDYL [Suspect]
     Active Substance: TRIHEXYPHENIDYL
     Indication: ABNORMAL BEHAVIOUR
     Route: 065
  3. IBUPROFEN. [Suspect]
     Active Substance: IBUPROFEN
     Indication: ARTHRALGIA
     Route: 065

REACTIONS (4)
  - Intestinal obstruction [Recovered/Resolved]
  - Large intestine perforation [Recovered/Resolved]
  - Constipation [Recovered/Resolved]
  - Gastrointestinal necrosis [Recovered/Resolved]
